FAERS Safety Report 21138747 (Version 1)
Quarter: 2022Q3

REPORT INFORMATION
  Report Type: Spontaneous
  Country: BR (occurrence: BR)
  Receive Date: 20220727
  Receipt Date: 20220727
  Transmission Date: 20221027
  Serious: Yes (Other)
  Sender: FDA-Public Use
  Company Number: BR-BoehringerIngelheim-2022-BI-182829

PATIENT
  Age: 41 Year
  Sex: Female
  Weight: 53 kg

DRUGS (7)
  1. BEROTEC [Suspect]
     Active Substance: FENOTEROL HYDROBROMIDE
     Indication: Asthma
     Dosage: BEROTEC DROPS 5MG/ML 10 DROPS DILUTED IN SALINE SOLUTION FOR INHALATION
     Route: 055
  2. SPIRIVA RESPIMAT [Suspect]
     Active Substance: TIOTROPIUM BROMIDE
     Indication: Asthma
     Dosage: SPIRIVA AEROSOL ONCE A DAY 2 PUFFS
     Route: 055
     Dates: start: 20220627, end: 20220719
  3. BUDESONIDE\FORMOTEROL FUMARATE [Concomitant]
     Active Substance: BUDESONIDE\FORMOTEROL FUMARATE
     Indication: Product used for unknown indication
  4. Alenia [Concomitant]
     Indication: Asthmatic crisis
  5. ALBUTEROL [Concomitant]
     Active Substance: ALBUTEROL
     Indication: Product used for unknown indication
  6. ALBUTEROL [Concomitant]
     Active Substance: ALBUTEROL
     Dosage: ABOUT 4 TABLETS A DAY
  7. Plenil [Concomitant]
     Indication: Product used for unknown indication

REACTIONS (11)
  - Glaucoma [Not Recovered/Not Resolved]
  - Blindness [Unknown]
  - Dyspnoea [Not Recovered/Not Resolved]
  - Drug ineffective [Recovered/Resolved]
  - Expired product administered [Unknown]
  - Weight decreased [Unknown]
  - Decreased appetite [Unknown]
  - Intentional product use issue [Unknown]
  - Asthma [Unknown]
  - Tremor [Unknown]
  - Exercise tolerance decreased [Unknown]

NARRATIVE: CASE EVENT DATE: 19920101
